FAERS Safety Report 9485334 (Version 2)
Quarter: 2013Q3

REPORT INFORMATION
  Report Type: Spontaneous
  Country: US (occurrence: US)
  Receive Date: 20130828
  Receipt Date: 20130915
  Transmission Date: 20140515
  Serious: Yes (Disabling, Other)
  Sender: FDA-Public Use
  Company Number: US-RB-057636-13

PATIENT
  Age: 49 Year
  Sex: Male

DRUGS (6)
  1. SUBOXONE FILM [Suspect]
     Dosage: SUBOXONE FILM
     Route: 060
     Dates: start: 201210, end: 201211
  2. SUBOXONE FILM [Suspect]
     Indication: DRUG DEPENDENCE
     Dosage: SUBOXONE FILM; DOSING DETAILS UNKNOWN; THE PATIENT BEGAN MEDICAL TAPER, WAS TAKING VARIOUS DOSES
     Route: 060
     Dates: start: 201211, end: 201303
  3. SUBOXONE FILM [Suspect]
     Dosage: SUBOXONE FILM; TAPERED DOSES
     Route: 060
     Dates: start: 201303, end: 20130505
  4. SUBOXONE FILM [Suspect]
     Dosage: SUBOXONE FILM; TAPER DOSES
     Route: 060
     Dates: start: 20130613
  5. TRAZODONE [Concomitant]
     Indication: INSOMNIA
     Dosage: DOSING DETAILS UNKNOWN
     Route: 048
  6. MULTIVITAMIN [Concomitant]
     Indication: VITAMIN SUPPLEMENTATION
     Dosage: DOSING DETAILS UNKNOWN
     Route: 048

REACTIONS (15)
  - Underdose [Not Recovered/Not Resolved]
  - Wrong technique in drug usage process [Not Recovered/Not Resolved]
  - Anosmia [Not Recovered/Not Resolved]
  - Ageusia [Not Recovered/Not Resolved]
  - Loss of consciousness [Not Recovered/Not Resolved]
  - Amnesia [Not Recovered/Not Resolved]
  - Dysacusis [Not Recovered/Not Resolved]
  - Back pain [Not Recovered/Not Resolved]
  - Tinnitus [Not Recovered/Not Resolved]
  - Anxiety [Not Recovered/Not Resolved]
  - Gait disturbance [Not Recovered/Not Resolved]
  - Foot deformity [Not Recovered/Not Resolved]
  - Cerumen impaction [Not Recovered/Not Resolved]
  - Tension headache [Not Recovered/Not Resolved]
  - Burning sensation [Not Recovered/Not Resolved]
